FAERS Safety Report 8491204-X (Version None)
Quarter: 2012Q2

REPORT INFORMATION
  Report Type: 
  Country: None (occurrence: None)
  Receive Date: 20120402
  Receipt Date: 20110318
  Transmission Date: 20120825
  Serious: Yes (Hospitalization, Other)
  Sender: FDA-Public Use
  Company Number: A-US2011-46487

PATIENT
  Age: 25 Year
  Sex: Male

DRUGS (1)
  1. EPOPROSTENOL SODIUM [Suspect]
     Indication: PULMONARY ARTERIAL HYPERTENSION
     Dosage: 22NG/KG, PER MIN, INTRAVENOUS
     Route: 042
     Dates: start: 20100629

REACTIONS (1)
  - RECTAL HAEMORRHAGE [None]
